FAERS Safety Report 14000466 (Version 2)
Quarter: 2017Q4

REPORT INFORMATION
  Report Type: Report from Study
  Country: US (occurrence: US)
  Receive Date: 20170922
  Receipt Date: 20171018
  Transmission Date: 20180321
  Serious: Yes (Hospitalization)
  Sender: FDA-Public Use
  Company Number: US-JNJFOC-20170921277

PATIENT
  Age: 67 Year
  Sex: Female

DRUGS (5)
  1. AZOR [Concomitant]
     Active Substance: AMLODIPINE BESYLATE\OLMESARTAN MEDOXOMIL
  2. TYLENOL [Concomitant]
     Active Substance: ACETAMINOPHEN
  3. XARELTO [Suspect]
     Active Substance: RIVAROXABAN
     Indication: PRODUCT USED FOR UNKNOWN INDICATION
     Route: 065
     Dates: end: 20171010
  4. IMBRUVICA [Suspect]
     Active Substance: IBRUTINIB
     Indication: WALDENSTROM^S MACROGLOBULINAEMIA
     Route: 048
     Dates: start: 20170828
  5. TOPROL XL [Concomitant]
     Active Substance: METOPROLOL SUCCINATE

REACTIONS (7)
  - Haemorrhage subcutaneous [Recovered/Resolved with Sequelae]
  - Haemoglobin decreased [Unknown]
  - Haematochezia [Recovered/Resolved with Sequelae]
  - Heart rate increased [Unknown]
  - Haematuria [Recovered/Resolved with Sequelae]
  - Blood sodium decreased [Not Recovered/Not Resolved]
  - Asthenia [Unknown]

NARRATIVE: CASE EVENT DATE: 20170909
